FAERS Safety Report 20846305 (Version 1)
Quarter: 2022Q2

REPORT INFORMATION
  Report Type: Spontaneous
  Country: US (occurrence: US)
  Receive Date: 20220518
  Receipt Date: 20220518
  Transmission Date: 20220720
  Serious: Yes (Other)
  Sender: FDA-Public Use
  Company Number: US-TARO-2022TAR00658

PATIENT
  Age: 17 Year
  Sex: Male

DRUGS (1)
  1. LAMOTRIGINE [Suspect]
     Active Substance: LAMOTRIGINE
     Indication: Seizure
     Dosage: 200 MG
     Route: 048
     Dates: start: 202108

REACTIONS (2)
  - Impaired healing [Not Recovered/Not Resolved]
  - Pilonidal disease [Not Recovered/Not Resolved]

NARRATIVE: CASE EVENT DATE: 20210902
